FAERS Safety Report 14167905 (Version 1)
Quarter: 2017Q4

REPORT INFORMATION
  Report Type: Spontaneous
  Country: US (occurrence: US)
  Receive Date: 20171107
  Receipt Date: 20171107
  Transmission Date: 20180321
  Serious: Yes (Other)
  Sender: FDA-Public Use
  Company Number: US-SUNOVION-2017SUN004793

PATIENT

DRUGS (3)
  1. SAPHRIS [Concomitant]
     Active Substance: ASENAPINE MALEATE
     Indication: SCHIZOPHRENIA
  2. LITHIUM CARBONATE. [Concomitant]
     Active Substance: LITHIUM CARBONATE
     Indication: SCHIZOPHRENIA
     Dosage: 300 UNK, UNK
  3. LATUDA [Suspect]
     Active Substance: LURASIDONE HYDROCHLORIDE
     Indication: SCHIZOPHRENIA
     Route: 048

REACTIONS (10)
  - Bradyphrenia [Unknown]
  - Speech disorder [Unknown]
  - Anxiety [Unknown]
  - Eating disorder [Unknown]
  - Insomnia [Unknown]
  - Suicidal ideation [Unknown]
  - Treatment noncompliance [Unknown]
  - Feeling abnormal [Unknown]
  - Tremor [Unknown]
  - Sensory disturbance [Unknown]
